FAERS Safety Report 18797621 (Version 2)
Quarter: 2024Q4

REPORT INFORMATION
  Report Type: Spontaneous
  Country: DE (occurrence: DE)
  Receive Date: 20210128
  Receipt Date: 20241022
  Transmission Date: 20250115
  Serious: Yes (Hospitalization, Other)
  Sender: AUROBINDO
  Company Number: DE-002147023-NVSC2020DE344231

PATIENT
  Sex: Female
  Weight: 100 kg

DRUGS (47)
  1. DULOXETINE [Suspect]
     Active Substance: DULOXETINE
     Indication: Pain
     Dosage: UNK
     Route: 065
  2. DULOXETINE [Suspect]
     Active Substance: DULOXETINE
     Indication: Fibromyalgia
  3. MIRTAZAPINE [Suspect]
     Active Substance: MIRTAZAPINE
     Indication: Product used for unknown indication
     Dosage: UNK
     Route: 065
  4. DOXEPIN [Suspect]
     Active Substance: DOXEPIN
     Indication: Product used for unknown indication
     Dosage: UNK
     Route: 065
  5. RANITIDINE HYDROCHLORIDE [Suspect]
     Active Substance: RANITIDINE HYDROCHLORIDE
     Indication: Product used for unknown indication
     Dosage: UNK
     Route: 065
  6. RANITIDINE HYDROCHLORIDE [Suspect]
     Active Substance: RANITIDINE HYDROCHLORIDE
     Indication: Product used for unknown indication
     Dosage: UNK
     Route: 065
  7. FLUPIRTINE [Suspect]
     Active Substance: FLUPIRTINE
     Indication: Product used for unknown indication
     Dosage: UNK
     Route: 065
  8. TILIDINE [Suspect]
     Active Substance: TILIDINE
     Indication: Pain
     Dosage: UNK
     Route: 065
  9. TETRAZEPAM [Concomitant]
     Active Substance: TETRAZEPAM
     Indication: Product used for unknown indication
     Dosage: UNK
     Route: 065
  10. TREVILOR RETARD [Concomitant]
     Active Substance: VENLAFAXINE HYDROCHLORIDE
     Indication: Product used for unknown indication
     Dosage: UNK
     Route: 065
  11. OMEBETA [Concomitant]
     Indication: Product used for unknown indication
     Dosage: UNK
     Route: 065
  12. PANTOPRAZOLE [Concomitant]
     Active Substance: PANTOPRAZOLE
     Indication: Product used for unknown indication
     Dosage: UNK
     Route: 065
  13. ESOMEPRAZOLE [Concomitant]
     Active Substance: ESOMEPRAZOLE
     Indication: Product used for unknown indication
     Dosage: UNK
     Route: 065
  14. DICLOFENAC [Concomitant]
     Active Substance: DICLOFENAC
     Indication: Product used for unknown indication
     Dosage: UNK
     Route: 065
  15. MAPROTILINE [Concomitant]
     Active Substance: MAPROTILINE
     Indication: Pain
     Dosage: UNK
     Route: 065
  16. MEBEVERINE [Concomitant]
     Active Substance: MEBEVERINE
     Indication: Product used for unknown indication
     Dosage: UNK
     Route: 065
  17. ANAFRANIL [Concomitant]
     Active Substance: CLOMIPRAMINE HYDROCHLORIDE
     Indication: Pain
     Dosage: UNK
     Route: 065
  18. ACETYLCYSTEINE [Concomitant]
     Active Substance: ACETYLCYSTEINE
     Indication: Product used for unknown indication
     Dosage: UNK
     Route: 065
  19. Mydocalm [Concomitant]
     Indication: Product used for unknown indication
     Dosage: UNK
     Route: 065
  20. TRAMADOL HYDROCHLORIDE [Concomitant]
     Active Substance: TRAMADOL HYDROCHLORIDE
     Indication: Product used for unknown indication
     Dosage: UNK
     Route: 065
  21. HERBALS\HOPS\VALERIAN [Concomitant]
     Active Substance: HERBALS\HOPS\VALERIAN
     Indication: Product used for unknown indication
     Dosage: UNK
     Route: 065
  22. ASPIRIN [Concomitant]
     Active Substance: ASPIRIN
     Indication: Product used for unknown indication
     Dosage: UNK
     Route: 065
  23. RANITIDINE [Concomitant]
     Active Substance: RANITIDINE
     Indication: Product used for unknown indication
     Dosage: UNK
     Route: 065
  24. BETAMETHASONE DIPROPIONATE\CLOTRIMAZOLE [Concomitant]
     Active Substance: BETAMETHASONE DIPROPIONATE\CLOTRIMAZOLE
     Indication: Product used for unknown indication
     Dosage: UNK
     Route: 065
  25. ARCOXIA [Concomitant]
     Active Substance: ETORICOXIB
     Indication: Product used for unknown indication
     Dosage: UNK
     Route: 065
  26. PANTOZOL [Concomitant]
     Active Substance: PANTOPRAZOLE SODIUM
     Indication: Product used for unknown indication
     Dosage: UNK
     Route: 065
  27. RANITIDINE HYDROCHLORIDE [Concomitant]
     Active Substance: RANITIDINE HYDROCHLORIDE
     Indication: Product used for unknown indication
     Dosage: UNK
     Route: 065
  28. AMITRIPTYLINE [Concomitant]
     Active Substance: AMITRIPTYLINE
     Indication: Product used for unknown indication
     Dosage: UNK
     Route: 065
  29. MAGNESIUM [Concomitant]
     Active Substance: MAGNESIUM
     Indication: Product used for unknown indication
     Dosage: UNK
     Route: 065
  30. METAMIZOLE [Concomitant]
     Active Substance: METAMIZOLE
     Indication: Product used for unknown indication
     Dosage: UNK
     Route: 065
  31. PREGABALIN [Concomitant]
     Active Substance: PREGABALIN
     Indication: Product used for unknown indication
     Dosage: UNK
     Route: 065
  32. DIAZEPAM [Concomitant]
     Active Substance: DIAZEPAM
     Indication: Product used for unknown indication
     Dosage: UNK
     Route: 065
  33. BLACK COHOSH\HERBALS\HYPERICUM PERFORATUM [Concomitant]
     Active Substance: BLACK COHOSH\HERBALS\HYPERICUM PERFORATUM
     Indication: Product used for unknown indication
     Dosage: UNK
     Route: 065
  34. RAMIPRIL [Concomitant]
     Active Substance: RAMIPRIL
     Indication: Product used for unknown indication
     Dosage: UNK
     Route: 065
  35. CELEBREX [Concomitant]
     Active Substance: CELECOXIB
     Indication: Product used for unknown indication
     Dosage: UNK
     Route: 065
  36. CALCI D [Concomitant]
     Indication: Product used for unknown indication
     Dosage: 1 DOSAGE FORM, ONCE A DAY
     Route: 065
  37. CEFUROXIME [Concomitant]
     Active Substance: CEFUROXIME
     Indication: Prophylaxis
     Dosage: 4.5 MILLIGRAM, ONCE A DAY
     Route: 065
  38. DICLOFENAC [Concomitant]
     Active Substance: DICLOFENAC
     Indication: Product used for unknown indication
     Dosage: UNK
     Route: 065
     Dates: start: 19991005, end: 19991005
  39. TRAMADOL [Concomitant]
     Active Substance: TRAMADOL
     Indication: Pain
     Dosage: 1 DOSAGE FORM, ONCE A DAY
     Route: 065
     Dates: start: 201310
  40. TETRAZEPAM [Concomitant]
     Active Substance: TETRAZEPAM
     Indication: Product used for unknown indication
     Dosage: 1 DOSAGE FORM, ONCE A DAY
     Route: 065
  41. TRIMIPRAMINE [Concomitant]
     Active Substance: TRIMIPRAMINE
     Indication: Pain
     Dosage: UNK(1-5 DROPS AT NIGHT))
     Route: 065
  42. IBUPROFEN [Concomitant]
     Active Substance: IBUPROFEN
     Indication: Product used for unknown indication
     Dosage: 1800 MILLIGRAM, ONCE A DAY
     Route: 065
  43. Novalgin [Concomitant]
     Indication: Surgery
     Dosage: UNK(2 X 500, FOUR TIMES DAILY)
     Route: 065
  44. Valoron [Concomitant]
     Indication: Analgesic therapy
     Dosage: UNK
     Route: 065
  45. CERTOPARIN SODIUM [Concomitant]
     Active Substance: CERTOPARIN SODIUM
     Indication: Product used for unknown indication
     Dosage: UNK((ONCE DAILY (EVENING))
     Route: 065
     Dates: start: 201109
  46. ENOXAPARIN SODIUM [Concomitant]
     Active Substance: ENOXAPARIN SODIUM
     Indication: Product used for unknown indication
     Dosage: 40 MILLIGRAM, ONCE A DAY
     Route: 065
  47. CEFUROXIME [Concomitant]
     Active Substance: CEFUROXIME
     Indication: Paranasal sinus inflammation
     Dosage: UNK(1 X 500, TWICE, MORNING, EVENING)
     Route: 065

REACTIONS (155)
  - Radial nerve palsy [Unknown]
  - Osteoarthritis [Unknown]
  - Asthenia [Unknown]
  - Fibromyalgia [Unknown]
  - Arthralgia [Unknown]
  - Erythema [Unknown]
  - Impaired healing [Recovering/Resolving]
  - Cartilage injury [Unknown]
  - Haematoma [Not Recovered/Not Resolved]
  - Patellofemoral pain syndrome [Unknown]
  - Arthralgia [Unknown]
  - Dizziness [Unknown]
  - Movement disorder [Recovering/Resolving]
  - Fall [Unknown]
  - Radial nerve palsy [Unknown]
  - Meniscus injury [Unknown]
  - Nail avulsion [Unknown]
  - Sciatica [Unknown]
  - Meniscus injury [Unknown]
  - Rotator cuff syndrome [Recovered/Resolved]
  - Femur fracture [Unknown]
  - Nausea [Unknown]
  - Chondropathy [Unknown]
  - Device related infection [Unknown]
  - Headache [Unknown]
  - Humerus fracture [Recovering/Resolving]
  - Dysplasia [Unknown]
  - Peripheral nerve lesion [Unknown]
  - Facial paresis [Unknown]
  - Hypoaesthesia [Unknown]
  - Weight increased [Unknown]
  - Multiple sclerosis [Unknown]
  - Nasal turbinate hypertrophy [Unknown]
  - Humerus fracture [Unknown]
  - Angina pectoris [Unknown]
  - Cataract [Unknown]
  - Nasal septum deviation [Unknown]
  - Cervical vertebral fracture [Unknown]
  - Foramen magnum stenosis [Unknown]
  - Junctional ectopic tachycardia [Unknown]
  - Crohn^s disease [Unknown]
  - Gastrointestinal infection [Unknown]
  - Diverticulitis [Unknown]
  - Junctional ectopic tachycardia [Unknown]
  - Suicidal ideation [Not Recovered/Not Resolved]
  - Sinobronchitis [Unknown]
  - Sensation of foreign body [Unknown]
  - Nausea [Unknown]
  - Lymphoedema [Unknown]
  - Tendon disorder [Unknown]
  - Stress [Unknown]
  - Hyperhidrosis [Recovering/Resolving]
  - Tension headache [Unknown]
  - Pathological fracture [Unknown]
  - Constipation [Not Recovered/Not Resolved]
  - Myofascial pain syndrome [Recovering/Resolving]
  - Intervertebral disc protrusion [Unknown]
  - Back pain [Unknown]
  - Osteoporosis postmenopausal [Unknown]
  - Atrial tachycardia [Unknown]
  - Anxiety disorder [Unknown]
  - Joint effusion [Unknown]
  - Abdominal discomfort [Not Recovered/Not Resolved]
  - Pain [Unknown]
  - Defaecation disorder [Unknown]
  - Micturition disorder [Unknown]
  - Dyspnoea exertional [Unknown]
  - Pain [Unknown]
  - Constipation [Unknown]
  - Hypertension [Unknown]
  - Dry mouth [Unknown]
  - Paranasal sinus inflammation [Unknown]
  - Vitamin D deficiency [Recovering/Resolving]
  - Sleep disorder [Unknown]
  - Eczema [Unknown]
  - Spinal osteoarthritis [Unknown]
  - Muscle strain [Unknown]
  - Tremor [Unknown]
  - Mental disorder [Unknown]
  - Facet joint syndrome [Unknown]
  - Arthralgia [Unknown]
  - Obesity [Unknown]
  - Visual impairment [Not Recovered/Not Resolved]
  - Injury [Unknown]
  - Hyperhidrosis [Unknown]
  - Arthralgia [Unknown]
  - Peripheral swelling [Unknown]
  - Sleep disorder [Unknown]
  - Depression [Unknown]
  - Obstructive airways disorder [Unknown]
  - Dyspepsia [Unknown]
  - Somnolence [Unknown]
  - Fatigue [Unknown]
  - Vertebral lesion [Unknown]
  - Diastolic dysfunction [Unknown]
  - Restrictive pulmonary disease [Unknown]
  - Constipation [Unknown]
  - Diarrhoea [Not Recovered/Not Resolved]
  - Depression [Unknown]
  - Osteosclerosis [Unknown]
  - Myofascial pain syndrome [Unknown]
  - Stupor [Unknown]
  - Gastrointestinal motility disorder [Unknown]
  - Osteoarthritis [Unknown]
  - Arthropathy [Unknown]
  - Bursitis [Unknown]
  - Joint stiffness [Unknown]
  - Osteoarthritis [Unknown]
  - Bone density decreased [Unknown]
  - Gait disturbance [Unknown]
  - Limb injury [Unknown]
  - Iliotibial band syndrome [Unknown]
  - Hypersensitivity [Unknown]
  - Mental disorder [Unknown]
  - Abdominal pain [Recovered/Resolved]
  - Pain in extremity [Unknown]
  - Vitamin B12 decreased [Recovered/Resolved]
  - Myofascial pain syndrome [Unknown]
  - Uterine leiomyoma [Unknown]
  - Asthenia [Unknown]
  - Supraventricular tachycardia [Unknown]
  - Abdominal pain upper [Unknown]
  - Flatulence [Unknown]
  - Gastritis [Unknown]
  - Dysaesthesia [Unknown]
  - Malaise [Unknown]
  - Hot flush [Unknown]
  - Personality disorder [Unknown]
  - Osteopenia [Unknown]
  - Constipation [Unknown]
  - Irritable bowel syndrome [Unknown]
  - Hyperlipidaemia [Unknown]
  - Memory impairment [Unknown]
  - Vomiting [Unknown]
  - Full blood count abnormal [Recovered/Resolved]
  - Scar [Unknown]
  - Fall [Unknown]
  - Supraventricular tachycardia [Unknown]
  - Back pain [Unknown]
  - Disturbance in attention [Unknown]
  - Cyst [Unknown]
  - Arthralgia [Unknown]
  - Pain in extremity [Recovering/Resolving]
  - Myalgia [Unknown]
  - Supraventricular tachycardia [Unknown]
  - Fibromyalgia [Unknown]
  - Abdominal pain upper [Recovered/Resolved]
  - Somatic symptom disorder [Unknown]
  - Blood iron decreased [Recovered/Resolved]
  - Tachycardia [Unknown]
  - Nocturia [Unknown]
  - Groin pain [Unknown]
  - Alanine aminotransferase increased [Unknown]
  - Migraine [Unknown]
  - Ligament sprain [Unknown]

NARRATIVE: CASE EVENT DATE: 19990101
